FAERS Safety Report 5244378-8 (Version None)
Quarter: 2007Q1

REPORT INFORMATION
  Report Type: 
  Country: None (occurrence: None)
  Receive Date: 20070222
  Receipt Date: 20070213
  Transmission Date: 20070707
  Serious: Yes (Other)
  Sender: FDA-Public Use
  Company Number: US-PFIZER INC-2007012375

PATIENT
  Sex: Male

DRUGS (1)
  1. DOSTINEX [Suspect]
     Indication: BLOOD PROLACTIN ABNORMAL

REACTIONS (1)
  - BLOOD PROLACTIN INCREASED [None]
